FAERS Safety Report 19439800 (Version 2)
Quarter: 2021Q3

REPORT INFORMATION
  Report Type: Spontaneous
  Country: US (occurrence: US)
  Receive Date: 20210620
  Receipt Date: 20210729
  Transmission Date: 20211014
  Serious: No
  Sender: FDA-Public Use
  Company Number: US-CELGENEUS-USA-20210603271

PATIENT
  Sex: Female

DRUGS (4)
  1. XGEVA [Concomitant]
     Active Substance: DENOSUMAB
     Indication: PRODUCT USED FOR UNKNOWN INDICATION
     Route: 065
  2. REVLIMID [Suspect]
     Active Substance: LENALIDOMIDE
     Indication: PLASMA CELL MYELOMA
     Dosage: 10 MILLIGRAM
     Route: 048
     Dates: start: 20210211
  3. REVLIMID [Suspect]
     Active Substance: LENALIDOMIDE
     Dosage: 2.5 MILLIGRAM
     Route: 048
     Dates: start: 20210705
  4. REVLIMID [Suspect]
     Active Substance: LENALIDOMIDE
     Dosage: 5 MILLIGRAM
     Route: 048
     Dates: start: 202105

REACTIONS (14)
  - Fatigue [Unknown]
  - Depression [Unknown]
  - Throat irritation [Unknown]
  - Abdominal distension [Unknown]
  - Nasal discomfort [Unknown]
  - Paraesthesia [Unknown]
  - Dysuria [Unknown]
  - Dyspnoea [Unknown]
  - Rash pruritic [Unknown]
  - Unevaluable event [Unknown]
  - Contusion [Unknown]
  - Insomnia [Unknown]
  - Blister [Unknown]
  - Asthenia [Unknown]
